FAERS Safety Report 8536909 (Version 2)
Quarter: 2012Q4

REPORT INFORMATION
  Report Type: 
  Country: CA (occurrence: CA)
  Receive Date: 20120430
  Receipt Date: 20120828
  Transmission Date: 20130627
  Serious: Yes (Other)
  Sender: FDA-Public Use
  Company Number: CA-JNJFOC-20120410287

PATIENT
  Age: 54 Year
  Sex: Male
  Weight: 88.45 kg

DRUGS (4)
  1. REMICADE [Suspect]
     Indication: CROHN^S DISEASE
     Route: 042
     Dates: start: 20120524, end: 20120524
  2. REMICADE [Suspect]
     Indication: CROHN^S DISEASE
     Route: 042
     Dates: start: 20120405
  3. REMICADE [Suspect]
     Indication: CROHN^S DISEASE
     Dosage: 0-2-6
     Route: 042
  4. REMICADE [Suspect]
     Indication: CROHN^S DISEASE
     Route: 042
     Dates: start: 20110718, end: 20111024

REACTIONS (6)
  - Paraesthesia [Unknown]
  - Infusion related reaction [Unknown]
  - Sensation of pressure [Recovering/Resolving]
  - Hot flush [Recovering/Resolving]
  - Flushing [Recovering/Resolving]
  - Cough [Recovering/Resolving]
